FAERS Safety Report 9000827 (Version 1)
Quarter: 2013Q1

REPORT INFORMATION
  Report Type: Spontaneous
  Country: US (occurrence: None)
  Receive Date: 20130103
  Receipt Date: 20130103
  Transmission Date: 20140127
  Serious: Yes (Life-Threatening, Other)
  Sender: FDA-Public Use
  Company Number: None

PATIENT
  Age: 56 Year
  Sex: Male
  Weight: 86.18 kg

DRUGS (2)
  1. WARFARIN SODIUM [Suspect]
     Indication: CARDIAC VALVE PROSTHESIS USER
     Route: 048
     Dates: start: 20070612, end: 20121231
  2. ECONAZOLE NITRATE [Suspect]
     Indication: FUNGAL INFECTION
     Dosage: APPLY TO AFFECTED AREA TWICE DAILY TOP
     Dates: start: 20121218, end: 20121227

REACTIONS (2)
  - International normalised ratio increased [None]
  - Blood urine present [None]
